FAERS Safety Report 6293331-4 (Version None)
Quarter: 2009Q3

REPORT INFORMATION
  Report Type: 
  Country: None (occurrence: None)
  Receive Date: 20090731
  Receipt Date: 20090723
  Transmission Date: 20100115
  Serious: Yes (Hospitalization, Other)
  Sender: FDA-Public Use
  Company Number: PHFR2006GB00738

PATIENT
  Sex: Male

DRUGS (2)
  1. CLOZARIL [Suspect]
     Indication: SCHIZOPHRENIA
     Dosage: 250 MG, QD
     Route: 048
     Dates: start: 20051213, end: 20060201
  2. OLANZAPINE [Concomitant]
     Dosage: 10 MG, PRN

REACTIONS (5)
  - AGRANULOCYTOSIS [None]
  - BLOOD PRESSURE INCREASED [None]
  - NEUTROPENIA [None]
  - ORAL CANDIDIASIS [None]
  - SCHIZOPHRENIA [None]
